FAERS Safety Report 23151818 (Version 2)
Quarter: 2024Q3

REPORT INFORMATION
  Report Type: Spontaneous
  Country: CA (occurrence: CA)
  Receive Date: 20231107
  Receipt Date: 20240823
  Transmission Date: 20241017
  Serious: Yes (Other)
  Sender: BAXTER
  Company Number: CA-BAXTER-2023BAX034678

PATIENT
  Age: 50 Year
  Sex: Female
  Weight: 64 kg

DRUGS (3)
  1. SODIUM CHLORIDE [Suspect]
     Active Substance: SODIUM CHLORIDE
     Indication: Product used for unknown indication
     Dosage: AT AN UNSPECIFIED DOSE AND FREQUENCY
     Route: 065
  2. SIMPONI [Suspect]
     Active Substance: GOLIMUMAB
     Indication: Rheumatoid arthritis
     Dosage: (DOSAGE FORM: SOLUTION FOR INJECTION IN PRE-FILLED PEN) 50 MILLIGRAM 1 EVERY 3 WEEKS
     Route: 058
  3. SIMPONI [Suspect]
     Active Substance: GOLIMUMAB
     Indication: Rheumatoid arthritis
     Dosage: (DOSAGE FORM: SOLUTION SUBCUTANEOUS) 50 MILLIGRAM 1 EVERY 3 WEEKS
     Route: 058

REACTIONS (12)
  - Depressive symptom [Recovering/Resolving]
  - Drug ineffective [Recovering/Resolving]
  - Inflammation [Recovering/Resolving]
  - Influenza [Recovering/Resolving]
  - Lower respiratory tract infection [Recovering/Resolving]
  - Nasal discomfort [Recovering/Resolving]
  - Oral candidiasis [Recovering/Resolving]
  - Osteomyelitis [Recovering/Resolving]
  - Rheumatoid arthritis [Recovering/Resolving]
  - Sinusitis [Recovering/Resolving]
  - Tooth loss [Recovering/Resolving]
  - Nasal operation [Recovering/Resolving]
